FAERS Safety Report 23534445 (Version 1)
Quarter: 2024Q1

REPORT INFORMATION
  Report Type: Spontaneous
  Country: JP (occurrence: JP)
  Receive Date: 20240217
  Receipt Date: 20240217
  Transmission Date: 20240410
  Serious: Yes (Hospitalization, Other)
  Sender: FDA-Public Use
  Company Number: JP-HEXAL-SDZ2023JP028539AA

PATIENT
  Age: 66 Year
  Sex: Female

DRUGS (1)
  1. METHOTREXATE [Suspect]
     Active Substance: METHOTREXATE
     Indication: Rheumatoid arthritis
     Dosage: UNK
     Route: 048

REACTIONS (3)
  - Hepatic neoplasm [Recovering/Resolving]
  - Colon neoplasm [Recovering/Resolving]
  - Lymphoproliferative disorder [Recovering/Resolving]
